FAERS Safety Report 21405676 (Version 3)
Quarter: 2022Q4

REPORT INFORMATION
  Report Type: Report from Study
  Country: CN (occurrence: CN)
  Receive Date: 20221004
  Receipt Date: 20221119
  Transmission Date: 20230113
  Serious: Yes (Hospitalization, Other)
  Sender: FDA-Public Use
  Company Number: CN-NOVARTISPH-NVSC2022CN219762

PATIENT
  Age: 52 Year
  Sex: Female

DRUGS (1)
  1. COSENTYX [Suspect]
     Active Substance: SECUKINUMAB
     Indication: Psoriasis
     Dosage: 300 MG, QMO
     Route: 058
     Dates: start: 20220601, end: 202209

REACTIONS (6)
  - Transaminases increased [Unknown]
  - Blood bilirubin increased [Unknown]
  - Blood bilirubin unconjugated increased [Unknown]
  - Carbohydrate antigen 19-9 increased [Unknown]
  - Breast cancer [Unknown]
  - Emotional disorder [Unknown]

NARRATIVE: CASE EVENT DATE: 20220801
